FAERS Safety Report 6497509-6 (Version None)
Quarter: 2009Q4

REPORT INFORMATION
  Report Type: 
  Country: None (occurrence: None)
  Receive Date: 20091215
  Receipt Date: 20091203
  Transmission Date: 20100525
  Serious: Yes (Other)
  Sender: FDA-Public Use
  Company Number: DE-BRISTOL-MYERS SQUIBB COMPANY-14890685

PATIENT
  Age: 64 Year
  Sex: Male

DRUGS (4)
  1. LYSODREN [Suspect]
  2. RAMIPRIL [Concomitant]
  3. HYDROCHLOROTHIAZIDE [Concomitant]
  4. HYDROCORTISONE [Concomitant]

REACTIONS (3)
  - DIARRHOEA [None]
  - DRUG LEVEL ABOVE THERAPEUTIC [None]
  - WEIGHT DECREASED [None]
